FAERS Safety Report 14720532 (Version 1)
Quarter: 2018Q1

REPORT INFORMATION
  Report Type: Spontaneous
  Country: US (occurrence: US)
  Receive Date: 20180330
  Receipt Date: 20180330
  Transmission Date: 20180509
  Serious: Yes (Hospitalization)
  Sender: FDA-Public Use
  Company Number: None

PATIENT
  Age: 55 Year
  Sex: Female
  Weight: 81.9 kg

DRUGS (1)
  1. KENALOG [Suspect]
     Active Substance: TRIAMCINOLONE ACETONIDE
     Indication: ECZEMA
     Dates: start: 20180321

REACTIONS (4)
  - Sensation of foreign body [None]
  - Ocular hyperaemia [None]
  - Rash pruritic [None]
  - Blood pressure measurement [None]

NARRATIVE: CASE EVENT DATE: 20180321
